FAERS Safety Report 9152933 (Version 1)
Quarter: 2013Q1

REPORT INFORMATION
  Report Type: Spontaneous
  Country: US (occurrence: US)
  Receive Date: 20130307
  Receipt Date: 20130307
  Transmission Date: 20140127
  Serious: Yes (Other)
  Sender: FDA-Public Use
  Company Number: US-RB-050428-13

PATIENT
  Age: 69 Year
  Sex: Male

DRUGS (3)
  1. MUCINEX FAST MAX ADULT COLD, FLU + SORE THROAT (ACETAMINOPHEN) [Suspect]
     Indication: PRODUCT USED FOR UNKNOWN INDICATION
     Route: 048
     Dates: start: 20130220
  2. MUCINEX FAST MAX ADULT COLD + SINUS (GUAIFENESIN) [Suspect]
  3. MUCINEX FAST-MAX SEVERE CONGESTION AND COUGH [Suspect]

REACTIONS (1)
  - Heart rate irregular [Not Recovered/Not Resolved]
